FAERS Safety Report 10423732 (Version 1)
Quarter: 2014Q3

REPORT INFORMATION
  Report Type: Report from Study
  Country: BR (occurrence: BR)
  Receive Date: 20140902
  Receipt Date: 20140902
  Transmission Date: 20150326
  Serious: Yes (Disabling, Other)
  Sender: FDA-Public Use
  Company Number: BR-ABBVIE-14K-020-1276273-00

PATIENT
  Age: 60 Year
  Sex: Male
  Weight: 84 kg

DRUGS (7)
  1. COMBODART [Concomitant]
     Active Substance: DUTASTERIDE\TAMSULOSIN
     Indication: PROSTATIC DISORDER
  2. HUMIRA [Suspect]
     Active Substance: ADALIMUMAB
     Indication: ANKYLOSING SPONDYLITIS
     Dosage: EACH 14 OR 15 DAYS
     Route: 058
  3. COMBODART [Concomitant]
     Active Substance: DUTASTERIDE\TAMSULOSIN
     Indication: URINE FLOW DECREASED
     Route: 048
     Dates: start: 2006
  4. CALCITRANS [Concomitant]
     Active Substance: CALCIUM GLUCONATE
     Indication: BONE DISORDER
     Dosage: CALCIUM CARBONATE 600 MG CHOLECALCIFEROL 5 MCG
     Route: 048
     Dates: start: 201308
  5. LOSARTAN POTASSIUM. [Concomitant]
     Active Substance: LOSARTAN POTASSIUM
     Indication: HYPERTENSION
     Route: 048
  6. OMEPRAZOLE. [Concomitant]
     Active Substance: OMEPRAZOLE
     Indication: GASTRIC DISORDER
     Route: 048
     Dates: start: 2006
  7. FLAVONID [Concomitant]
     Indication: ARTHROPATHY
     Route: 048
     Dates: start: 2010

REACTIONS (8)
  - Osteoarthritis [Recovered/Resolved]
  - Blood cholesterol abnormal [Unknown]
  - Open fracture [Recovered/Resolved]
  - Osteoarthritis [Recovered/Resolved]
  - Uveitis [Recovered/Resolved]
  - Fall [Recovered/Resolved]
  - Retinal oedema [Recovering/Resolving]
  - Cataract [Recovered/Resolved]

NARRATIVE: CASE EVENT DATE: 2005
